FAERS Safety Report 10037592 (Version 1)
Quarter: 2014Q1

REPORT INFORMATION
  Report Type: Spontaneous
  Country: US (occurrence: None)
  Receive Date: 20140325
  Receipt Date: 20140325
  Transmission Date: 20141002
  Serious: Yes (Hospitalization)
  Sender: FDA-Public Use
  Company Number: None

PATIENT
  Age: 44 Year
  Sex: Male
  Weight: 84.1 kg

DRUGS (15)
  1. AZACITIDINE [Suspect]
  2. FOLIC ACID [Concomitant]
  3. OXYCODONE [Concomitant]
  4. ATIVAN [Concomitant]
  5. LOVENOX [Concomitant]
  6. MORPHINE INJ [Concomitant]
  7. BENZONATATE [Concomitant]
  8. DEXAMETHASONE [Concomitant]
  9. ZOFRAN [Concomitant]
  10. OXYCONTIN [Concomitant]
  11. COMPAZINE [Concomitant]
  12. HEPARIN INJ [Concomitant]
  13. PLAVIX [Concomitant]
  14. TOPROL XL [Concomitant]
  15. ASPIRIN [Concomitant]

REACTIONS (1)
  - Myocardial infarction [None]
